FAERS Safety Report 10244245 (Version 1)
Quarter: 2014Q2

REPORT INFORMATION
  Report Type: Spontaneous
  Country: CA (occurrence: CA)
  Receive Date: 20140618
  Receipt Date: 20140618
  Transmission Date: 20141212
  Serious: Yes (Death)
  Sender: FDA-Public Use
  Company Number: CA-PFIZER INC-2014162839

PATIENT
  Age: 25 Year
  Sex: Male

DRUGS (8)
  1. ADRIAMYCIN [Suspect]
     Indication: CHORIOCARCINOMA
  2. BLEOMYCIN SULFATE [Suspect]
     Indication: CHORIOCARCINOMA
  3. DACARBAZINE [Suspect]
     Indication: CHORIOCARCINOMA
  4. MATULANE [Suspect]
     Indication: CHORIOCARCINOMA
  5. NITROGEN MUSTARD [Suspect]
     Indication: CHORIOCARCINOMA
  6. ONCOVIN [Suspect]
     Indication: CHORIOCARCINOMA
     Dosage: 1 MG/ML, UNK
  7. PREDNISONE [Suspect]
     Indication: CHORIOCARCINOMA
     Route: 048
  8. VINBLASTINE SULFATE [Suspect]
     Indication: CHORIOCARCINOMA

REACTIONS (3)
  - Disease progression [Fatal]
  - Choriocarcinoma [Fatal]
  - Respiratory failure [Fatal]
